FAERS Safety Report 22253942 (Version 1)
Quarter: 2023Q2

REPORT INFORMATION
  Report Type: Other
  Country: KR (occurrence: None)
  Receive Date: 20230426
  Receipt Date: 20230426
  Transmission Date: 20230721
  Serious: Yes (Death)
  Sender: FDA-Public Use
  Company Number: KR-ROCHE-3169980

PATIENT
  Age: 67 Year
  Sex: Male

DRUGS (7)
  1. ATEZOLIZUMAB [Suspect]
     Active Substance: ATEZOLIZUMAB
     Indication: Small cell lung cancer
     Dosage: MOST RECENT DOSE: 20/JUL/2022, 03/SEP/2022
     Route: 065
     Dates: start: 20220628
  2. GRASIN [Concomitant]
     Dosage: DOSE: 300/ MCC
     Dates: start: 20220802, end: 20220802
  3. ONDANSETRON [Concomitant]
     Active Substance: ONDANSETRON
  4. NALOXONE HYDROCHLORIDE\OXYCODONE HYDROCHLORIDE [Concomitant]
     Active Substance: NALOXONE HYDROCHLORIDE\OXYCODONE HYDROCHLORIDE
  5. MOSAPRIDE CITRATE [Concomitant]
     Active Substance: MOSAPRIDE CITRATE
  6. HARMONILAN [Concomitant]
  7. OXYCODONE HYDROCHLORIDE [Concomitant]
     Active Substance: OXYCODONE HYDROCHLORIDE

REACTIONS (2)
  - Asthenia [Not Recovered/Not Resolved]
  - Ileus paralytic [Fatal]

NARRATIVE: CASE EVENT DATE: 20220802
